FAERS Safety Report 11222417 (Version 1)
Quarter: 2015Q2

REPORT INFORMATION
  Report Type: Spontaneous
  Country: BR (occurrence: BR)
  Receive Date: 20150626
  Receipt Date: 20150626
  Transmission Date: 20150821
  Serious: Yes (Other)
  Sender: FDA-Public Use
  Company Number: BR-BIOMARINAP-BR-2015-106500

PATIENT
  Age: 15 Year
  Sex: Female
  Weight: 18 kg

DRUGS (1)
  1. VIMIZIM [Suspect]
     Active Substance: ELOSULFASE ALFA
     Indication: MUCOPOLYSACCHARIDOSIS IV
     Dosage: 40 MG, QW
     Route: 042
     Dates: start: 20150324

REACTIONS (3)
  - Pyrexia [Unknown]
  - Respiratory distress [Unknown]
  - Chills [Unknown]

NARRATIVE: CASE EVENT DATE: 20150527
